FAERS Safety Report 5091435-5 (Version None)
Quarter: 2006Q3

REPORT INFORMATION
  Report Type: 
  Country: None (occurrence: None)
  Receive Date: 20060824
  Receipt Date: 20060822
  Transmission Date: 20061208
  Serious: Yes (Disabling)
  Sender: FDA-Public Use
  Company Number: AR-2006-022356

PATIENT
  Sex: Male

DRUGS (1)
  1. BETAFERON (INTERFERON BETA - 1B)INJECTION, 250?G [Suspect]
     Indication: MULTIPLE SCLEROSIS
     Dosage: SUBCUTANEOUS
     Route: 058
     Dates: start: 20060401, end: 20060501

REACTIONS (3)
  - APHASIA [None]
  - CEREBRAL ISCHAEMIA [None]
  - MONOPARESIS [None]
